FAERS Safety Report 19728882 (Version 11)
Quarter: 2025Q1

REPORT INFORMATION
  Report Type: Report from Study
  Country: US (occurrence: US)
  Receive Date: 20210820
  Receipt Date: 20250108
  Transmission Date: 20250409
  Serious: Yes (Hospitalization, Other)
  Sender: TAKEDA
  Company Number: US-TAKEDA-US202000343

PATIENT
  Age: 61 Year
  Sex: Female

DRUGS (2)
  1. HUMAN IMMUNOGLOBULIN G [Suspect]
     Active Substance: HUMAN IMMUNOGLOBULIN G
     Indication: Primary immunodeficiency syndrome
  2. HUMAN IMMUNOGLOBULIN G [Suspect]
     Active Substance: HUMAN IMMUNOGLOBULIN G
     Indication: Immunodeficiency common variable

REACTIONS (21)
  - Vaginal infection [Recovering/Resolving]
  - Infusion site infection [Recovering/Resolving]
  - Intervertebral disc degeneration [Recovering/Resolving]
  - Urinary tract infection [Unknown]
  - Autoimmune disorder [Unknown]
  - Ear infection [Unknown]
  - General physical health deterioration [Not Recovered/Not Resolved]
  - Nasopharyngitis [Unknown]
  - COVID-19 [Unknown]
  - Food allergy [Unknown]
  - Product dose omission issue [Unknown]
  - Precancerous cells present [Unknown]
  - Viral infection [Unknown]
  - Immunisation reaction [Unknown]
  - Paranasal sinus discomfort [Unknown]
  - Sinus disorder [Unknown]
  - Ear discomfort [Unknown]
  - Vertigo [Unknown]
  - Peripheral swelling [Unknown]
  - Erythema [Unknown]
  - Pain in extremity [Unknown]

NARRATIVE: CASE EVENT DATE: 20240419
